FAERS Safety Report 5651613-0 (Version None)
Quarter: 2008Q1

REPORT INFORMATION
  Report Type: 
  Country: None (occurrence: None)
  Receive Date: 20080305
  Receipt Date: 20080228
  Transmission Date: 20080703
  Serious: Yes (Other)
  Sender: FDA-Public Use
  Company Number: US-AVENTIS-200811319US

PATIENT
  Sex: Male

DRUGS (4)
  1. ALLEGRA D 24 HOUR [Suspect]
     Indication: MULTIPLE ALLERGIES
     Dosage: DOSE: UNK
     Route: 048
     Dates: start: 20080101, end: 20080210
  2. UNKNOWN DRUG [Suspect]
     Indication: ATTENTION DEFICIT/HYPERACTIVITY DISORDER
     Route: 048
     Dates: start: 20071201
  3. SINGULAIR [Concomitant]
     Dosage: DOSE: UNK
     Dates: start: 20060101
  4. BENADRYL [Concomitant]
     Dosage: DOSE: UNK
     Dates: start: 20050101

REACTIONS (4)
  - ABNORMAL BEHAVIOUR [None]
  - ANGER [None]
  - DRUG INTERACTION [None]
  - SUICIDAL IDEATION [None]
